FAERS Safety Report 16473404 (Version 1)
Quarter: 2019Q2

REPORT INFORMATION
  Report Type: Spontaneous
  Country: DE (occurrence: DE)
  Receive Date: 20190625
  Receipt Date: 20190625
  Transmission Date: 20190711
  Serious: Yes (Disabling)
  Sender: FDA-Public Use
  Company Number: DE-DRREDDYS-GER/GER/19/0111165

PATIENT
  Sex: Female

DRUGS (1)
  1. LETROZOLE. [Suspect]
     Active Substance: LETROZOLE
     Indication: BREAST CANCER FEMALE
     Dates: start: 2018

REACTIONS (19)
  - Trigger finger [Unknown]
  - Sleep disorder [Unknown]
  - Weight increased [Unknown]
  - Blood pressure increased [Unknown]
  - Eye irritation [Unknown]
  - Micturition urgency [Unknown]
  - Palpitations [Unknown]
  - Pain in extremity [Unknown]
  - Sensory disturbance [Unknown]
  - Joint swelling [Unknown]
  - Breast pain [Unknown]
  - Bone pain [Unknown]
  - Hot flush [Unknown]
  - Arthralgia [Unknown]
  - Impaired quality of life [Unknown]
  - Dry mouth [Unknown]
  - Vision blurred [Unknown]
  - Dry skin [Unknown]
  - Alopecia [Unknown]
